FAERS Safety Report 9681015 (Version 5)
Quarter: 2020Q4

REPORT INFORMATION
  Report Type: Spontaneous
  Country: US (occurrence: US)
  Receive Date: 20131111
  Receipt Date: 20201110
  Transmission Date: 20210114
  Serious: Yes (Other)
  Sender: FDA-Public Use
  Company Number: US-SA-2013SA114677

PATIENT

DRUGS (5)
  1. FABRAZYME [Suspect]
     Active Substance: AGALSIDASE BETA
     Indication: FABRY^S DISEASE
     Dosage: 1 MG/KG,QOW
     Route: 042
     Dates: start: 20090212
  2. FABRAZYME [Suspect]
     Active Substance: AGALSIDASE BETA
     Dosage: 1 MG/KG,QOW
     Route: 042
     Dates: start: 20090212
  3. DIPHENHYDRAMINE. [Concomitant]
     Active Substance: DIPHENHYDRAMINE
     Indication: PREMEDICATION
     Dosage: 6.5 MG,UNK
     Route: 048
  4. FABRAZYME [Suspect]
     Active Substance: AGALSIDASE BETA
     Dosage: 1 MG/KG,QOW
     Route: 042
     Dates: start: 20090212
  5. LIDOCAINE. [Concomitant]
     Active Substance: LIDOCAINE
     Indication: PREMEDICATION
     Dosage: AT SITE OF NEEDLE INSERTION

REACTIONS (3)
  - Type IV hypersensitivity reaction [Unknown]
  - Globotriaosylsphingosine increased [Unknown]
  - Rash follicular [Not Recovered/Not Resolved]

NARRATIVE: CASE EVENT DATE: 201308
